FAERS Safety Report 5835017-3 (Version None)
Quarter: 2008Q3

REPORT INFORMATION
  Report Type: 
  Country: None (occurrence: None)
  Receive Date: 20080806
  Receipt Date: 20080804
  Transmission Date: 20090109
  Serious: Yes (Other)
  Sender: FDA-Public Use
  Company Number: FR-RB-002903-08

PATIENT
  Age: 37 Year
  Sex: Male

DRUGS (6)
  1. SUBUTEX [Suspect]
     Indication: DRUG THERAPY
     Route: 045
  2. SUBUTEX [Suspect]
     Dosage: DOSING INFORMATION UNKNOWN
     Route: 065
  3. SUBUTEX [Suspect]
     Route: 065
  4. COCAINE [Suspect]
     Indication: DRUG USE FOR UNKNOWN INDICATION
     Dosage: DOSE UNKNOWN
     Route: 065
  5. ALCOHOL [Suspect]
     Indication: DRUG USE FOR UNKNOWN INDICATION
     Dosage: AMOUNT CONSUMED IS UNKNOWN
  6. HEROIN [Suspect]
     Indication: DRUG USE FOR UNKNOWN INDICATION
     Dosage: DOSE UNKNOWN

REACTIONS (4)
  - DRUG DIVERSION [None]
  - INCORRECT ROUTE OF DRUG ADMINISTRATION [None]
  - SUBSTANCE ABUSE [None]
  - SUICIDE ATTEMPT [None]
